FAERS Safety Report 20531014 (Version 1)
Quarter: 2022Q1

REPORT INFORMATION
  Report Type: Report from Study
  Country: US (occurrence: US)
  Receive Date: 20220301
  Receipt Date: 20220301
  Transmission Date: 20220424
  Serious: Yes (Other)
  Sender: FDA-Public Use
  Company Number: US-ABBVIE-22K-163-4295042-00

PATIENT
  Age: 80 Year
  Sex: Female

DRUGS (5)
  1. HUMIRA [Suspect]
     Active Substance: ADALIMUMAB
     Indication: Product used for unknown indication
     Dosage: CITRATE FREE
     Route: 058
  2. HUMIRA [Suspect]
     Active Substance: ADALIMUMAB
     Dosage: CITRATE FREE
     Route: 058
  3. PFIZER BIONTECH COVID-19 [Concomitant]
     Indication: COVID-19 immunisation
     Dosage: 1ST DOSE
     Route: 030
     Dates: start: 20210202, end: 20210202
  4. PFIZER BIONTECH COVID-19 [Concomitant]
     Dosage: 2ND DOSE
     Route: 030
     Dates: start: 20210301, end: 20210301
  5. PFIZER BIONTECH COVID-19 [Concomitant]
     Dosage: 3RD DOSE- BOOSTER
     Route: 030
     Dates: start: 20211020, end: 20211020

REACTIONS (7)
  - Loss of consciousness [Recovering/Resolving]
  - Nerve injury [Unknown]
  - Face injury [Unknown]
  - Fall [Unknown]
  - Therapeutic procedure [Unknown]
  - Staphylococcal infection [Recovered/Resolved]
  - Psoriasis [Recovering/Resolving]

NARRATIVE: CASE EVENT DATE: 20211201
